FAERS Safety Report 5564966-9 (Version None)
Quarter: 2007Q4

REPORT INFORMATION
  Report Type: 
  Country: None (occurrence: None)
  Receive Date: 20071218
  Receipt Date: 20071209
  Transmission Date: 20080405
  Serious: Yes (Other)
  Sender: FDA-Public Use
  Company Number: B0499875A

PATIENT
  Age: 30 Year
  Sex: Male

DRUGS (3)
  1. LAMICTAL [Suspect]
     Indication: BIPOLAR DISORDER
     Route: 048
     Dates: start: 20070905, end: 20071008
  2. IBUX [Concomitant]
     Route: 065
  3. AMINOGLYCOSIDE [Concomitant]
     Route: 065

REACTIONS (7)
  - ACUTE RESPIRATORY DISTRESS SYNDROME [None]
  - COUGH [None]
  - GENERAL PHYSICAL HEALTH DETERIORATION [None]
  - MYALGIA [None]
  - PYREXIA [None]
  - RASH GENERALISED [None]
  - RENAL FAILURE [None]
